FAERS Safety Report 8646928 (Version 2)
Quarter: 2013Q1

REPORT INFORMATION
  Report Type: Report from Study
  Country: JP (occurrence: JP)
  Receive Date: 20120703
  Receipt Date: 20130102
  Transmission Date: 20140127
  Serious: Yes (Hospitalization)
  Sender: FDA-Public Use
  Company Number: JP-SANOFI-AVENTIS-2012SA045669

PATIENT
  Age: 74 Year
  Sex: Male
  Weight: 48 kg

DRUGS (5)
  1. OXALIPLATIN [Suspect]
     Indication: COLON CANCER
     Dosage: DOSE: 79.5 MG/M2
     Route: 041
     Dates: start: 20110613, end: 20110613
  2. FLUOROURACIL [Suspect]
     Indication: COLON CANCER
     Dosage: DOSE: 364.5 MG/M2
     Route: 040
     Dates: start: 20110613, end: 20110613
  3. FLUOROURACIL [Suspect]
     Indication: COLON CANCER
     Route: 041
     Dates: start: 20110613, end: 20110613
  4. CALCIUM LEVOFOLINATE [Concomitant]
     Dates: start: 20110613, end: 20110613
  5. SERENACE [Concomitant]
     Dates: start: 20110614, end: 20110614

REACTIONS (4)
  - Hyperammonaemia [Recovered/Resolved]
  - Depressed level of consciousness [Recovered/Resolved]
  - Encephalopathy [Recovered/Resolved]
  - Convulsion [Recovered/Resolved]
